FAERS Safety Report 17945060 (Version 2)
Quarter: 2025Q2

REPORT INFORMATION
  Report Type: Spontaneous
  Country: IT (occurrence: IT)
  Receive Date: 20200626
  Receipt Date: 20250624
  Transmission Date: 20250716
  Serious: Yes (Hospitalization, Other)
  Sender: AUROBINDO
  Company Number: IT-PFM-2020-14424

PATIENT
  Age: 44 Year
  Sex: Female

DRUGS (4)
  1. AZITHROMYCIN [Suspect]
     Active Substance: AZITHROMYCIN
     Indication: COVID-19 pneumonia
     Route: 065
  2. AZITHROMYCIN [Suspect]
     Active Substance: AZITHROMYCIN
     Route: 065
  3. HYDROXYCHLOROQUINE [Suspect]
     Active Substance: HYDROXYCHLOROQUINE
     Indication: COVID-19 pneumonia
     Route: 065
  4. OXYGEN [Suspect]
     Active Substance: OXYGEN
     Indication: COVID-19 pneumonia
     Route: 055

REACTIONS (12)
  - Mental disorder [Unknown]
  - Drug interaction [Unknown]
  - Cerebral venous thrombosis [Unknown]
  - Vena cava thrombosis [Unknown]
  - Pulmonary artery thrombosis [Unknown]
  - Disseminated intravascular coagulation [Unknown]
  - Hemiparesis [Unknown]
  - Aphasia [Unknown]
  - Headache [Unknown]
  - Dyspnoea [Unknown]
  - Product use in unapproved indication [Unknown]
  - Off label use [Unknown]
